FAERS Safety Report 7876286-8 (Version None)
Quarter: 2011Q4

REPORT INFORMATION
  Report Type: 
  Country: None (occurrence: None)
  Receive Date: 20111031
  Receipt Date: 20111018
  Transmission Date: 20120403
  Serious: No
  Sender: FDA-Public Use
  Company Number: JP-MERCK-1109USA01434

PATIENT
  Age: 77 Year
  Sex: Female

DRUGS (2)
  1. AMARYL [Concomitant]
     Indication: DIABETES MELLITUS
     Dosage: DAILY DOSAGE UNKNOWN
     Route: 048
  2. JANUVIA [Suspect]
     Route: 048
     Dates: start: 20110911, end: 20110913

REACTIONS (1)
  - URTICARIA [None]
